FAERS Safety Report 7078386-1 (Version None)
Quarter: 2010Q4

REPORT INFORMATION
  Report Type: 
  Country: None (occurrence: None)
  Receive Date: 20101101
  Receipt Date: 20101101
  Transmission Date: 20110411
  Serious: No
  Sender: FDA-Public Use
  Company Number: None

PATIENT
  Age: 41 Year
  Sex: Male
  Weight: 81.6475 kg

DRUGS (2)
  1. AVELOX [Suspect]
  2. LEVAQUIN [Suspect]

REACTIONS (2)
  - ARTHRALGIA [None]
  - MYALGIA [None]
